FAERS Safety Report 10625134 (Version 1)
Quarter: 2014Q4

REPORT INFORMATION
  Report Type: Spontaneous
  Country: IT (occurrence: None)
  Receive Date: 20141202
  Receipt Date: 20141202
  Transmission Date: 20150529
  Serious: Yes (Hospitalization)
  Sender: FDA-Public Use
  Company Number: 2014DEPIT00611

PATIENT
  Age: 58 Year
  Sex: Male

DRUGS (1)
  1. DEPOCYT(E) (CYTARABINE) LIPOSOME INJECTABLE SUSPENSION [Suspect]
     Active Substance: CYTARABINE
     Indication: ANGIOCENTRIC LYMPHOMA RECURRENT
     Route: 037
     Dates: start: 20140903

REACTIONS (3)
  - Septic shock [None]
  - Neutropenia [None]
  - Thrombocytopenia [None]

NARRATIVE: CASE EVENT DATE: 20140907
